FAERS Safety Report 25145689 (Version 1)
Quarter: 2025Q2

REPORT INFORMATION
  Report Type: Spontaneous
  Country: US (occurrence: US)
  Receive Date: 20250401
  Receipt Date: 20250401
  Transmission Date: 20250717
  Serious: Yes (Death, Other)
  Sender: AMGEN
  Company Number: US-AMGEN-USASP2025060856

PATIENT

DRUGS (3)
  1. PREDNISONE [Suspect]
     Active Substance: PREDNISONE
     Indication: Myocarditis
     Route: 065
  2. METHOTREXATE [Concomitant]
     Active Substance: METHOTREXATE
     Indication: Myocarditis
  3. FOLIC ACID [Concomitant]
     Active Substance: FOLIC ACID
     Indication: Myocarditis
     Route: 065

REACTIONS (8)
  - Death [Fatal]
  - Sudden cardiac death [Fatal]
  - Myocarditis [Unknown]
  - Ventricular arrhythmia [Unknown]
  - Ventricular tachycardia [Unknown]
  - Ventricular extrasystoles [Unknown]
  - Drug effective for unapproved indication [Unknown]
  - Off label use [Unknown]
